FAERS Safety Report 15157034 (Version 1)
Quarter: 2018Q3

REPORT INFORMATION
  Report Type: Spontaneous
  Country: DE (occurrence: DE)
  Receive Date: 20180718
  Receipt Date: 20180718
  Transmission Date: 20181010
  Serious: Yes (Hospitalization, Other)
  Sender: FDA-Public Use
  Company Number: DE-SUN PHARMACEUTICAL INDUSTRIES LTD-2018R1-178136

PATIENT
  Age: 50 Year
  Sex: Female
  Weight: 47 kg

DRUGS (1)
  1. CIPROFLOXACIN. [Suspect]
     Active Substance: CIPROFLOXACIN
     Indication: NASOPHARYNGITIS
     Dosage: 2 X 1 TABLETTE
     Route: 048
     Dates: start: 20120612

REACTIONS (22)
  - Muscle atrophy [Not Recovered/Not Resolved]
  - Muscle spasms [Not Recovered/Not Resolved]
  - Diarrhoea [Not Recovered/Not Resolved]
  - Circulatory collapse [Unknown]
  - Respiratory distress [Unknown]
  - Depression [Not Recovered/Not Resolved]
  - Obstructive airways disorder [Unknown]
  - Tendon discomfort [Not Recovered/Not Resolved]
  - Dyspnoea [Not Recovered/Not Resolved]
  - Hypersensitivity [Not Recovered/Not Resolved]
  - Joint swelling [Not Recovered/Not Resolved]
  - Weight decreased [Not Recovered/Not Resolved]
  - Anaphylactic shock [Unknown]
  - Hypertension [Not Recovered/Not Resolved]
  - Swollen tongue [Unknown]
  - Abdominal pain [Not Recovered/Not Resolved]
  - Swelling face [Unknown]
  - Panic attack [Not Recovered/Not Resolved]
  - Blood pressure decreased [Unknown]
  - Rash [Unknown]
  - Abdominal discomfort [Not Recovered/Not Resolved]
  - Insomnia [Not Recovered/Not Resolved]

NARRATIVE: CASE EVENT DATE: 20120612
